FAERS Safety Report 7988093-6 (Version None)
Quarter: 2011Q4

REPORT INFORMATION
  Report Type: 
  Country: None (occurrence: None)
  Receive Date: 20111216
  Receipt Date: 20110614
  Transmission Date: 20120403
  Serious: Yes (Other)
  Sender: FDA-Public Use
  Company Number: US-BRISTOL-MYERS SQUIBB COMPANY-15803083

PATIENT
  Age: 29 Year
  Sex: Male
  Weight: 70 kg

DRUGS (3)
  1. ABILIFY [Suspect]
     Indication: PANIC ATTACK
     Route: 048
     Dates: start: 20050101, end: 20060101
  2. ABILIFY [Suspect]
     Indication: DEPRESSION
     Route: 048
     Dates: start: 20050101, end: 20060101
  3. ABILIFY [Suspect]
     Indication: ANXIETY
     Route: 048
     Dates: start: 20050101, end: 20060101

REACTIONS (3)
  - SUICIDAL IDEATION [None]
  - ANXIETY [None]
  - TREMOR [None]
